FAERS Safety Report 8513064-0 (Version None)
Quarter: 2012Q3

REPORT INFORMATION
  Report Type: 
  Country: None (occurrence: None)
  Receive Date: 20120716
  Receipt Date: 20120705
  Transmission Date: 20120928
  Serious: Yes (Other)
  Sender: FDA-Public Use
  Company Number: JP-CELGENEUS-087-21660-12071116

PATIENT
  Age: 65 Year
  Sex: Female

DRUGS (1)
  1. ABRAXANE [Suspect]
     Indication: BREAST CANCER
     Dosage: 220 MILLIGRAM/SQ. METER
     Route: 041
     Dates: start: 20110107, end: 20120601

REACTIONS (1)
  - MYELODYSPLASTIC SYNDROME [None]
